FAERS Safety Report 6965198-X (Version None)
Quarter: 2010Q3

REPORT INFORMATION
  Report Type: 
  Country: None (occurrence: None)
  Receive Date: 20100903
  Receipt Date: 20100826
  Transmission Date: 20110219
  Serious: Yes (Hospitalization, Disabling)
  Sender: FDA-Public Use
  Company Number: FR-EISAI INC.-E3810-04055-SPO-FR

PATIENT
  Sex: Female

DRUGS (9)
  1. PARIET (RABEPRAZOLE) [Suspect]
     Indication: GASTROOESOPHAGEAL REFLUX DISEASE
     Route: 048
     Dates: end: 20100201
  2. TAHOR [Suspect]
     Indication: HYPERCHOLESTEROLAEMIA
     Route: 048
     Dates: end: 20100301
  3. XELEVIA [Suspect]
     Indication: DIABETES MELLITUS
     Route: 048
     Dates: start: 20091201, end: 20100301
  4. PAROXETINE HCL [Suspect]
     Indication: DEPRESSION
     Route: 048
     Dates: end: 20100101
  5. METFORMIN [Suspect]
     Indication: DIABETES MELLITUS
     Route: 048
  6. BISOPROLOL FUMARATE [Suspect]
     Indication: HYPERTENSION
     Route: 048
  7. TAREG [Suspect]
     Indication: HYPERTENSION
     Route: 048
  8. KARDEGIC [Suspect]
     Route: 048
  9. LEVOTHYROXINE SODIUM [Suspect]
     Route: 048

REACTIONS (3)
  - BLOOD CREATINE PHOSPHOKINASE INCREASED [None]
  - MYALGIA [None]
  - RHABDOMYOLYSIS [None]
